FAERS Safety Report 25983489 (Version 2)
Quarter: 2025Q4

REPORT INFORMATION
  Report Type: Spontaneous
  Country: CA (occurrence: CA)
  Receive Date: 20251031
  Receipt Date: 20251107
  Transmission Date: 20260117
  Serious: Yes (Other)
  Sender: RANBAXY
  Company Number: CA-SUN PHARMACEUTICAL INDUSTRIES LTD-2025R1-534011

PATIENT
  Age: 3 Year

DRUGS (1)
  1. FLUOXETINE [Suspect]
     Active Substance: FLUOXETINE HYDROCHLORIDE
     Indication: Nervous system disorder
     Dosage: UNK
     Route: 065

REACTIONS (1)
  - Withdrawal syndrome [Unknown]
